FAERS Safety Report 5451729-8 (Version None)
Quarter: 2007Q3

REPORT INFORMATION
  Report Type: 
  Country: None (occurrence: None)
  Receive Date: 20070913
  Receipt Date: 20070901
  Transmission Date: 20080115
  Serious: Yes (Hospitalization, Other)
  Sender: FDA-Public Use
  Company Number: FR-PFIZER INC-2007072986

PATIENT
  Age: 15 Year
  Sex: Male

DRUGS (2)
  1. SOLU-MEDROL [Suspect]
     Indication: OEDEMA
     Route: 042
     Dates: start: 20070830, end: 20070101
  2. SALBUTAMOL SULFATE [Concomitant]

REACTIONS (6)
  - ANAPHYLACTIC SHOCK [None]
  - MALAISE [None]
  - OEDEMA MUCOSAL [None]
  - PULMONARY CONGESTION [None]
  - SKIN OEDEMA [None]
  - URTICARIA [None]
